FAERS Safety Report 19041550 (Version 1)
Quarter: 2021Q1

REPORT INFORMATION
  Report Type: Spontaneous
  Country: US (occurrence: US)
  Receive Date: 20210322
  Receipt Date: 20210322
  Transmission Date: 20210420
  Serious: Yes (Other)
  Sender: FDA-Public Use
  Company Number: US-SPECGX-T202100473

PATIENT
  Age: 55 Year
  Sex: Female

DRUGS (13)
  1. FLUOXETINE [Suspect]
     Active Substance: FLUOXETINE HYDROCHLORIDE
     Indication: PAIN
     Dosage: 80 MILLIGRAM, QD
     Route: 065
  2. MORPHINE [Suspect]
     Active Substance: MORPHINE
     Indication: BREAKTHROUGH PAIN
     Dosage: UNK (30 MG AS NEEDED)
     Route: 065
  3. GABAPENTIN. [Suspect]
     Active Substance: GABAPENTIN
     Indication: PAIN
     Dosage: 300 MILLIGRAM, TID
     Route: 065
  4. FENTANYL TRANSDERMAL SYSTEM [Suspect]
     Active Substance: FENTANYL
     Indication: PAIN
     Dosage: UNK (125 MG/HR)
     Route: 062
  5. MORPHINE [Suspect]
     Active Substance: MORPHINE
     Dosage: UNK (4 MG/HOUR WITH INTERMITTENT BOLUS DOSES)
     Route: 065
  6. MORPHINE [Suspect]
     Active Substance: MORPHINE
     Dosage: 500 MILLIGRAM, QD
     Route: 065
  7. CLONAZEPAM. [Suspect]
     Active Substance: CLONAZEPAM
     Indication: PAIN
     Dosage: UNK ( 0.25 TO 0.5 MG NIGHTLY)
     Route: 065
  8. HYDROMORPHONE [Suspect]
     Active Substance: HYDROMORPHONE
     Indication: PAIN
     Dosage: UNK
     Route: 065
  9. TRAZODONE [Suspect]
     Active Substance: TRAZODONE HYDROCHLORIDE
     Indication: PAIN
     Dosage: 100 MILLIGRAM NIGHTLY
     Route: 065
  10. MORPHINE [Suspect]
     Active Substance: MORPHINE
     Dosage: UNK (APPROXIMATELY 300 MG/DAY)
     Route: 065
  11. MORPHINE [Suspect]
     Active Substance: MORPHINE
     Dosage: UNK (500?600/DAY)
     Route: 065
  12. FENTANYL TRANSDERMAL SYSTEM [Suspect]
     Active Substance: FENTANYL
     Dosage: UNK (175 MG/HR)
     Route: 062
  13. ALPRAZOLAM. [Suspect]
     Active Substance: ALPRAZOLAM
     Indication: PAIN
     Dosage: 0.5 MG AS NEEDED
     Route: 065

REACTIONS (3)
  - Delirium [Recovered/Resolved]
  - Sedation [Recovered/Resolved]
  - Myoclonus [Recovered/Resolved]
